FAERS Safety Report 19166761 (Version 13)
Quarter: 2022Q2

REPORT INFORMATION
  Report Type: Report from Study
  Country: JP (occurrence: JP)
  Receive Date: 20210421
  Receipt Date: 20220525
  Transmission Date: 20220721
  Serious: Yes (Hospitalization, Other)
  Sender: FDA-Public Use
  Company Number: JP-CHUGAI-A2021015240ROCHE

PATIENT
  Age: 58 Year
  Sex: Male
  Weight: 60.9 kg

DRUGS (31)
  1. BEVACIZUMAB [Suspect]
     Active Substance: BEVACIZUMAB
     Indication: Rectal cancer
     Route: 041
     Dates: start: 20210329, end: 20210329
  2. BEVACIZUMAB [Suspect]
     Active Substance: BEVACIZUMAB
     Route: 041
     Dates: start: 20210507, end: 20211202
  3. BEVACIZUMAB [Suspect]
     Active Substance: BEVACIZUMAB
     Route: 041
     Dates: start: 20211227, end: 20211227
  4. BEVACIZUMAB [Suspect]
     Active Substance: BEVACIZUMAB
     Route: 041
     Dates: start: 20220118, end: 20220208
  5. BEVACIZUMAB [Suspect]
     Active Substance: BEVACIZUMAB
     Route: 041
     Dates: start: 20220303, end: 20220414
  6. CAPECITABINE [Suspect]
     Active Substance: CAPECITABINE
     Indication: Rectal cancer
     Dosage: DOSE INTERVAL UNCERTAINTY
     Route: 048
     Dates: start: 20210329, end: 20210404
  7. CAPECITABINE [Suspect]
     Active Substance: CAPECITABINE
     Route: 048
     Dates: start: 20210507, end: 20211226
  8. CAPECITABINE [Suspect]
     Active Substance: CAPECITABINE
     Route: 048
     Dates: start: 20211227, end: 20220110
  9. CAPECITABINE [Suspect]
     Active Substance: CAPECITABINE
     Route: 048
     Dates: start: 20220118, end: 20220222
  10. CAPECITABINE [Suspect]
     Active Substance: CAPECITABINE
     Route: 048
     Dates: start: 20220303, end: 20220428
  11. OXALIPLATIN [Suspect]
     Active Substance: OXALIPLATIN
     Indication: Rectal cancer
     Route: 041
     Dates: start: 20210329, end: 20210329
  12. OXALIPLATIN [Suspect]
     Active Substance: OXALIPLATIN
     Route: 041
     Dates: start: 20210507, end: 20210819
  13. IRINOTECAN HYDROCHLORIDE [Suspect]
     Active Substance: IRINOTECAN HYDROCHLORIDE
     Indication: Rectal cancer
     Route: 041
     Dates: start: 20210329, end: 20210329
  14. IRINOTECAN HYDROCHLORIDE [Suspect]
     Active Substance: IRINOTECAN HYDROCHLORIDE
     Route: 041
     Dates: start: 20210507, end: 20210819
  15. ADONA [Concomitant]
     Indication: Haemorrhage prophylaxis
     Dosage: 90MG,ONCE IN1DAY
     Route: 048
     Dates: start: 20210404
  16. SYMPROIC [Concomitant]
     Active Substance: NALDEMEDINE
     Indication: Haemorrhage prophylaxis
     Dosage: 0.2MG,ONCE IN1DAY
     Route: 048
     Dates: start: 20210315, end: 20210406
  17. MAGNESIUM OXIDE [Concomitant]
     Active Substance: MAGNESIUM OXIDE
     Indication: Haemorrhage prophylaxis
     Dosage: 660MG,ONCE IN1DAY
     Route: 048
     Dates: start: 20210129, end: 202104
  18. HYDROMORPHONE HYDROCHLORIDE [Concomitant]
     Active Substance: HYDROMORPHONE HYDROCHLORIDE
     Indication: Cancer pain
     Dosage: 2MG,ONCE IN1DAY
     Route: 048
     Dates: start: 20210315, end: 20210409
  19. PALONOSETRON HYDROCHLORIDE [Concomitant]
     Active Substance: PALONOSETRON HYDROCHLORIDE
     Dosage: 0.75 MILLIGRAM, QD
     Route: 041
     Dates: start: 20210329, end: 20210329
  20. PALONOSETRON HYDROCHLORIDE [Concomitant]
     Active Substance: PALONOSETRON HYDROCHLORIDE
     Dosage: 0.75 MILLIGRAM, ONCE/3WEEKS
     Route: 041
     Dates: start: 20210507, end: 20210819
  21. DEXAMETHASONE SODIUM PHOSPHATE;MOXIFLOXACIN HYDROCHLORIDE [Concomitant]
     Dosage: 9.9 MILLIGRAM, QD
     Route: 041
     Dates: start: 20210329, end: 20210329
  22. DEXAMETHASONE SODIUM PHOSPHATE;MOXIFLOXACIN HYDROCHLORIDE [Concomitant]
     Dosage: 9.9 MILLIGRAM, ONCE/3WEEKS
     Route: 041
     Dates: start: 20210507, end: 20210819
  23. DEXAMETHASONE [Concomitant]
     Active Substance: DEXAMETHASONE
     Dosage: 8 MILLIGRAM
     Route: 048
     Dates: start: 20210330, end: 20210401
  24. DEXAMETHASONE [Concomitant]
     Active Substance: DEXAMETHASONE
     Dosage: 8 MILLIGRAM, ONCE/3WEEKS
     Route: 048
     Dates: start: 20210508, end: 20210822
  25. APREPITANT [Concomitant]
     Active Substance: APREPITANT
     Dosage: 125 MILLIGRAM, QD
     Route: 048
     Dates: start: 20210329, end: 20210329
  26. APREPITANT [Concomitant]
     Active Substance: APREPITANT
     Dosage: 80 UNK
     Route: 048
     Dates: start: 20210330, end: 20210331
  27. APREPITANT [Concomitant]
     Active Substance: APREPITANT
     Dosage: 125 MILLIGRAM, ONCE/3WEEKS
     Route: 048
     Dates: start: 20210507, end: 20210819
  28. APREPITANT [Concomitant]
     Active Substance: APREPITANT
     Dosage: 80 MILLIGRAM, ONCE/3WEEKS
     Route: 048
     Dates: start: 20210508, end: 20210821
  29. UNSPECIFIED INGREDIENT [Concomitant]
     Active Substance: UNSPECIFIED INGREDIENT
     Route: 065
  30. LOPERAMIDE HYDROCHLORIDE [Concomitant]
     Active Substance: LOPERAMIDE HYDROCHLORIDE
     Route: 065
  31. EMOLLIENT [Concomitant]
     Route: 065

REACTIONS (3)
  - Enterocolitis [Recovered/Resolved]
  - Decreased appetite [Recovered/Resolved]
  - Febrile neutropenia [Recovered/Resolved]

NARRATIVE: CASE EVENT DATE: 20210329
